FAERS Safety Report 5776512-5 (Version None)
Quarter: 2008Q2

REPORT INFORMATION
  Report Type: 
  Country: None (occurrence: None)
  Receive Date: 20080618
  Receipt Date: 20080606
  Transmission Date: 20081010
  Serious: Yes (Other)
  Sender: FDA-Public Use
  Company Number: IT-WYE-H04424608

PATIENT
  Age: 54 Year
  Sex: Male

DRUGS (1)
  1. SUPRAX [Suspect]
     Dosage: UNKNOWN

REACTIONS (7)
  - ANOREXIA [None]
  - CHOLESTASIS [None]
  - DRUG RASH WITH EOSINOPHILIA AND SYSTEMIC SYMPTOMS [None]
  - FACE OEDEMA [None]
  - MUCOSAL INFLAMMATION [None]
  - RENAL IMPAIRMENT [None]
  - STOMATITIS [None]
